FAERS Safety Report 23026729 (Version 1)
Quarter: 2023Q4

REPORT INFORMATION
  Report Type: Spontaneous
  Country: ES (occurrence: ES)
  Receive Date: 20231004
  Receipt Date: 20231004
  Transmission Date: 20240110
  Serious: Yes (Other)
  Sender: FDA-Public Use
  Company Number: ES-MYLANLABS-2023M1104432

PATIENT
  Age: 47 Year
  Sex: Female

DRUGS (16)
  1. PACLITAXEL [Suspect]
     Active Substance: PACLITAXEL
     Indication: Ovarian epithelial cancer
     Dosage: 175 MILLIGRAM/SQ. METER, Q21D, RECEIVED 6 CYCLES
     Route: 065
     Dates: start: 201410, end: 201501
  2. PACLITAXEL [Suspect]
     Active Substance: PACLITAXEL
     Dosage: 175 MILLIGRAM/SQ. METER, Q21D, RECEIVED 6 CYCLES
     Route: 065
     Dates: start: 201608, end: 201612
  3. PACLITAXEL [Suspect]
     Active Substance: PACLITAXEL
     Dosage: 175 MILLIGRAM/SQ. METER, Q21D, RECEIVED 5 CYCLES
     Route: 065
     Dates: end: 20180426
  4. CARBOPLATIN [Suspect]
     Active Substance: CARBOPLATIN
     Indication: Ovarian epithelial cancer
     Dosage: UNK UNK, Q21D, RECEIVED 6 CYCLES
     Route: 065
     Dates: start: 201410, end: 201501
  5. CARBOPLATIN [Suspect]
     Active Substance: CARBOPLATIN
     Dosage: UNK UNK, Q21D, RECEIVED 6 CYCLES
     Route: 065
     Dates: start: 201608, end: 201612
  6. CARBOPLATIN [Suspect]
     Active Substance: CARBOPLATIN
     Dosage: UNK UNK, Q21D, RECEIVED 5 CYCLES
     Route: 065
     Dates: start: 201801, end: 20180426
  7. BEVACIZUMAB [Suspect]
     Active Substance: BEVACIZUMAB
     Indication: Ovarian epithelial cancer
     Dosage: 7.5 MILLIGRAM/KILOGRAM, Q21D, RECEIVED 6 CYCLES
     Route: 065
     Dates: start: 201410, end: 201501
  8. BEVACIZUMAB [Suspect]
     Active Substance: BEVACIZUMAB
     Dosage: 7.5 MILLIGRAM/KILOGRAM, Q21D, THE MAINTENANCE THERAPY
     Route: 065
     Dates: start: 201502, end: 201602
  9. BEVACIZUMAB [Suspect]
     Active Substance: BEVACIZUMAB
     Dosage: 15 MILLIGRAM/SQ. METER, Q21D, ON DAY 1; RECEIVED A TOTAL OF 26 CYCLES
     Route: 065
     Dates: start: 201805, end: 201912
  10. OLAPARIB [Suspect]
     Active Substance: OLAPARIB
     Indication: Ovarian epithelial cancer
     Dosage: 400 MILLIGRAM, BID, MAINTENANCE TREATMENT
     Route: 048
     Dates: start: 20161226
  11. TRABECTEDIN [Suspect]
     Active Substance: TRABECTEDIN
     Indication: Ovarian epithelial cancer
     Dosage: 1.1 MILLIGRAM/SQ. METER, Q21D, RECEIVED A TOTAL OF 10 CYCLES
     Route: 065
     Dates: start: 201704
  12. TRABECTEDIN [Suspect]
     Active Substance: TRABECTEDIN
     Dosage: 0.9 MILLIGRAM/SQ. METER, CYCLE, FROM THE SIXTH CYCLE, THE DOSE WAS DECREASED
     Route: 065
     Dates: start: 2017, end: 201710
  13. DOXORUBICIN [Suspect]
     Active Substance: DOXORUBICIN
     Indication: Ovarian epithelial cancer
     Dosage: 30 MILLIGRAM/SQ. METER, Q21D
     Route: 065
     Dates: start: 201704
  14. DOXORUBICIN [Suspect]
     Active Substance: DOXORUBICIN
     Dosage: 25 MILLIGRAM/SQ. METER, CYCLE, FROM THE SIXTH CYCLE, THE DOSE WAS DECREASED
     Route: 065
     Dates: start: 2017, end: 201710
  15. DOXORUBICIN [Suspect]
     Active Substance: DOXORUBICIN
     Dosage: 40 MILLIGRAM/SQ. METER, 28D CYCLE, RECEIVED 3 CYCLES
     Route: 065
     Dates: start: 202001, end: 202003
  16. GEMCITABINE [Suspect]
     Active Substance: GEMCITABINE
     Indication: Ovarian epithelial cancer
     Dosage: 1000 MILLIGRAM/SQ. METER, Q21D, ON DAY 1 AND 8, RECEIVED A TOTAL OF 26 CYCLES
     Route: 065
     Dates: start: 201805, end: 201912

REACTIONS (8)
  - Neurotoxicity [Unknown]
  - Drug ineffective [Unknown]
  - Disease progression [Unknown]
  - Asthenia [Unknown]
  - Anaemia [Unknown]
  - Nausea [Unknown]
  - Vomiting [Unknown]
  - Decreased appetite [Unknown]

NARRATIVE: CASE EVENT DATE: 20160101
